FAERS Safety Report 8973378 (Version 4)
Quarter: 2013Q1

REPORT INFORMATION
  Report Type: Spontaneous
  Country: JP (occurrence: JP)
  Receive Date: 20121218
  Receipt Date: 20130107
  Transmission Date: 20140127
  Serious: Yes (Death, Life-Threatening, Hospitalization)
  Sender: FDA-Public Use
  Company Number: JP-AMGEN-JPNSP2012072498

PATIENT
  Age: 65 Year
  Sex: Female
  Weight: 52 kg

DRUGS (8)
  1. VECTIBIX [Suspect]
     Indication: RECTAL CANCER
     Dosage: 320 MG, Q2WK
     Route: 041
     Dates: start: 20120726, end: 20121101
  2. IRINOTECAN HYDROCHLORIDE [Suspect]
     Indication: RECTAL CANCER
     Dosage: 140 MG, Q2WK
     Route: 041
     Dates: start: 20120726, end: 20121101
  3. TS-1 [Suspect]
     Indication: RECTAL CANCER
     Dosage: 40 MG, BID
     Route: 048
     Dates: start: 20120726, end: 20121101
  4. PYDOXAL [Concomitant]
     Dosage: UNK
     Route: 048
  5. PANTOSIN [Concomitant]
     Dosage: UNK
     Route: 048
  6. MAGMITT [Concomitant]
     Dosage: UNK
     Route: 048
  7. SULPIRIDE [Concomitant]
     Dosage: UNK
     Route: 048
  8. NIPOLAZIN [Concomitant]
     Dosage: UNK
     Route: 048

REACTIONS (5)
  - Interstitial lung disease [Fatal]
  - Infusion related reaction [Recovered/Resolved]
  - Skin disorder [Unknown]
  - Hypokalaemia [Unknown]
  - Hypocalcaemia [Unknown]
